FAERS Safety Report 13224731 (Version 3)
Quarter: 2017Q1

REPORT INFORMATION
  Report Type: Report from Study
  Country: US (occurrence: US)
  Receive Date: 20170213
  Receipt Date: 20170330
  Transmission Date: 20170428
  Serious: Yes (Death)
  Sender: FDA-Public Use
  Company Number: US-ROCHE-1890858

PATIENT
  Age: 61 Year
  Sex: Female
  Weight: 79.6 kg

DRUGS (10)
  1. TYKERB [Concomitant]
     Active Substance: LAPATINIB DITOSYLATE
  2. DOXORUBICIN [Concomitant]
     Active Substance: DOXORUBICIN
  3. HERCEPTIN [Suspect]
     Active Substance: TRASTUZUMAB
     Indication: METASTASES TO LYMPH NODES
  4. HERCEPTIN [Suspect]
     Active Substance: TRASTUZUMAB
     Indication: BREAST CANCER
     Route: 042
     Dates: start: 20150105
  5. TAMOXIFEN [Concomitant]
     Active Substance: TAMOXIFEN
  6. ZOMETA [Concomitant]
     Active Substance: ZOLEDRONIC ACID
  7. XELODA [Suspect]
     Active Substance: CAPECITABINE
     Indication: PRODUCT USED FOR UNKNOWN INDICATION
     Route: 065
  8. CYCLOPHOSPHAMIDE. [Concomitant]
     Active Substance: CYCLOPHOSPHAMIDE
  9. LAPATINIB [Concomitant]
     Active Substance: LAPATINIB
  10. DOCETAXEL. [Concomitant]
     Active Substance: DOCETAXEL

REACTIONS (2)
  - Death [Fatal]
  - Therapy non-responder [Unknown]

NARRATIVE: CASE EVENT DATE: 20170112
